FAERS Safety Report 23980720 (Version 3)
Quarter: 2024Q3

REPORT INFORMATION
  Report Type: Report from Study
  Country: US (occurrence: US)
  Receive Date: 20240617
  Receipt Date: 20240918
  Transmission Date: 20241017
  Serious: Yes (Hospitalization, Other)
  Sender: GILEAD
  Company Number: US-GILEAD-2024-0671180

PATIENT
  Age: 50 Year
  Sex: Female

DRUGS (4)
  1. AMBRISENTAN [Suspect]
     Active Substance: AMBRISENTAN
     Indication: Pulmonary hypertension
     Dosage: 10 MG, QD
     Route: 065
     Dates: start: 20180405
  2. AMBRISENTAN [Suspect]
     Active Substance: AMBRISENTAN
     Dosage: 10 MG, QD
     Route: 065
     Dates: start: 20180405
  3. AMBRISENTAN [Suspect]
     Active Substance: AMBRISENTAN
     Dosage: 10 MG, QD
     Route: 065
     Dates: start: 20180415
  4. ADEMPAS [Concomitant]
     Active Substance: RIOCIGUAT

REACTIONS (8)
  - Panic attack [Unknown]
  - Pulmonary hypertension [Unknown]
  - Heart rate increased [Unknown]
  - Fall [Unknown]
  - Stress [Unknown]
  - Muscular weakness [Unknown]
  - Vision blurred [Unknown]
  - Dizziness [Unknown]

NARRATIVE: CASE EVENT DATE: 20240717
